FAERS Safety Report 8965300 (Version 2)
Quarter: 2012Q4

REPORT INFORMATION
  Report Type: 
  Country: IN (occurrence: IN)
  Receive Date: 20121213
  Receipt Date: 20121226
  Transmission Date: 20130627
  Serious: Yes (Death)
  Sender: FDA-Public Use
  Company Number: IN-SANOFI-AVENTIS-2012SA088972

PATIENT
  Age: 57 Year
  Sex: Female

DRUGS (1)
  1. TAXOTERE [Suspect]
     Indication: PANCREATIC CANCER
     Route: 042
     Dates: start: 20121110

REACTIONS (4)
  - Pancreatic carcinoma [Fatal]
  - Disease progression [Fatal]
  - Haemorrhage [Fatal]
  - Off label use [Unknown]
